FAERS Safety Report 22605900 (Version 2)
Quarter: 2023Q2

REPORT INFORMATION
  Report Type: Report from Study
  Country: CA (occurrence: CA)
  Receive Date: 20230615
  Receipt Date: 20230626
  Transmission Date: 20230722
  Serious: Yes (Hospitalization)
  Sender: FDA-Public Use
  Company Number: CA-002147023-NVSC2023CA134104

PATIENT
  Age: 37 Year
  Sex: Female

DRUGS (6)
  1. INDOMETHACIN [Suspect]
     Active Substance: INDOMETHACIN
     Indication: Chronic spontaneous urticaria
     Dosage: UNK
     Route: 065
  2. PANTOPRAZOLE [Suspect]
     Active Substance: PANTOPRAZOLE
     Indication: Chronic spontaneous urticaria
     Dosage: 40 MG, QD
     Route: 048
     Dates: start: 2014
  3. HYDROXYCHLOROQUINE [Concomitant]
     Active Substance: HYDROXYCHLOROQUINE
     Indication: Product used for unknown indication
     Dosage: 1 DOSAGE FORM, QD
     Route: 048
     Dates: start: 202007
  4. ALLEGRA [Concomitant]
     Active Substance: FEXOFENADINE HYDROCHLORIDE
     Indication: Product used for unknown indication
     Dosage: 4 DOSAGE FORM, PRN
     Route: 048
     Dates: start: 2014, end: 2015
  5. BENADRYL [Concomitant]
     Active Substance: DIPHENHYDRAMINE HYDROCHLORIDE
     Indication: Product used for unknown indication
     Dosage: 4 DOSAGE FORM, PRN
     Route: 048
     Dates: start: 2015, end: 2018
  6. RUPATADINE FUMARATE [Concomitant]
     Active Substance: RUPATADINE FUMARATE
     Indication: Product used for unknown indication
     Dosage: UNK
     Route: 065

REACTIONS (5)
  - Urticaria [Unknown]
  - Swelling face [Unknown]
  - Skin lesion [Unknown]
  - Papule [Unknown]
  - Off label use [Unknown]

NARRATIVE: CASE EVENT DATE: 20230420
